FAERS Safety Report 6540000-9 (Version None)
Quarter: 2010Q1

REPORT INFORMATION
  Report Type: 
  Country: None (occurrence: None)
  Receive Date: 20100115
  Receipt Date: 20100111
  Transmission Date: 20100710
  Serious: Yes (Death)
  Sender: FDA-Public Use
  Company Number: PHHY2010CN00840

PATIENT
  Age: 62 Year
  Sex: Male

DRUGS (2)
  1. GLEEVEC [Suspect]
     Indication: CHRONIC MYELOID LEUKAEMIA
     Dosage: 400 MG/D
     Route: 048
  2. CHEMOTHERAPEUTICS [Concomitant]

REACTIONS (3)
  - ACUTE LYMPHOCYTIC LEUKAEMIA [None]
  - BLOOD TEST ABNORMAL [None]
  - PLATELET COUNT DECREASED [None]
